FAERS Safety Report 8793465 (Version 2)
Quarter: 2012Q4

REPORT INFORMATION
  Report Type: 
  Country: US (occurrence: US)
  Receive Date: 20120917
  Receipt Date: 20121107
  Transmission Date: 20130627
  Serious: Yes (Death)
  Sender: FDA-Public Use
  Company Number: US-PFIZER INC-2012227351

PATIENT
  Sex: Female

DRUGS (1)
  1. PREPARATION H [Suspect]
     Indication: SKIN DISORDER
     Dosage: UNK

REACTIONS (4)
  - Neoplasm malignant [Fatal]
  - Off label use [Unknown]
  - Skin disorder [Unknown]
  - Therapeutic response unexpected [Unknown]
